FAERS Safety Report 4342652-0 (Version None)
Quarter: 2004Q2

REPORT INFORMATION
  Report Type: 
  Country: None (occurrence: None)
  Receive Date: 20040416
  Receipt Date: 20040401
  Transmission Date: 20050107
  Serious: Yes (Hospitalization)
  Sender: FDA-Public Use
  Company Number: 200402466

PATIENT
  Age: 4 Month
  Sex: Male
  Weight: 26 kg

DRUGS (1)
  1. ALESION (EPINASTINE) [Suspect]
     Indication: DRUG USE FOR UNKNOWN INDICATION
     Dosage: 10 MG QD PO
     Route: 048
     Dates: start: 20040325, end: 20040325

REACTIONS (1)
  - ABDOMINAL PAIN [None]
